FAERS Safety Report 17324857 (Version 1)
Quarter: 2020Q1

REPORT INFORMATION
  Report Type: Spontaneous
  Country: US (occurrence: US)
  Receive Date: 20200125
  Receipt Date: 20200125
  Transmission Date: 20200409
  Serious: Yes (Other)
  Sender: FDA-Public Use
  Company Number: None

PATIENT
  Age: 64 Year
  Sex: Female

DRUGS (4)
  1. FENTANYL TRANSDERMAL SYSTEM [Suspect]
     Active Substance: FENTANYL
     Indication: SOFT TISSUE DISORDER
     Dosage: ?          OTHER FREQUENCY:EVER 72 HOURS;?
     Route: 062
     Dates: start: 20200114
  2. FENTANYL 25 MCG/HR PATCH [Concomitant]
     Dates: start: 20200101, end: 20200113
  3. FENTANYL TRANSDERMAL SYSTEM [Suspect]
     Active Substance: FENTANYL
     Indication: OSTEOMALACIA
     Dosage: ?          OTHER FREQUENCY:EVER 72 HOURS;?
     Route: 062
     Dates: start: 20200114
  4. OXYCODONE 5MG TABLET [Concomitant]
     Dates: start: 20200102, end: 20200125

REACTIONS (5)
  - Inadequate analgesia [None]
  - Product substitution issue [None]
  - Influenza like illness [None]
  - Device issue [None]
  - Drug ineffective [None]

NARRATIVE: CASE EVENT DATE: 20200114
